FAERS Safety Report 22956555 (Version 4)
Quarter: 2024Q3

REPORT INFORMATION
  Report Type: Report from Study
  Country: CA (occurrence: CA)
  Receive Date: 20230919
  Receipt Date: 20240802
  Transmission Date: 20241016
  Serious: Yes (Other)
  Sender: NOVARTIS
  Company Number: CA-002147023-PHHY2019CA163873

PATIENT
  Age: 47 Year
  Sex: Female

DRUGS (11)
  1. COSENTYX [Suspect]
     Active Substance: SECUKINUMAB
     Indication: Ankylosing spondylitis
     Dosage: 150 MG, QMO (WEEKS 0, 1, 2 AND 3)
     Route: 058
     Dates: start: 20190704
  2. COSENTYX [Suspect]
     Active Substance: SECUKINUMAB
     Dosage: 150 MG, QW
     Route: 058
     Dates: start: 2019
  3. COSENTYX [Suspect]
     Active Substance: SECUKINUMAB
     Dosage: 150 MG, QMO
     Route: 058
  4. COSENTYX [Suspect]
     Active Substance: SECUKINUMAB
     Dosage: 150 MG, QMO
     Route: 058
     Dates: start: 20220525
  5. COSENTYX [Suspect]
     Active Substance: SECUKINUMAB
     Dosage: UNK
     Route: 065
     Dates: start: 20230325
  6. COSENTYX [Suspect]
     Active Substance: SECUKINUMAB
     Dosage: 300 MG, QMO
     Route: 058
     Dates: start: 2023
  7. COSENTYX [Suspect]
     Active Substance: SECUKINUMAB
     Dosage: 150 MG, QMO
     Route: 058
  8. VOLTAREN [Concomitant]
     Active Substance: DICLOFENAC SODIUM
     Indication: Product used for unknown indication
     Dosage: UNK
     Route: 061
     Dates: start: 2018, end: 2018
  9. LYRICA [Concomitant]
     Active Substance: PREGABALIN
     Indication: Product used for unknown indication
     Dosage: UNK
     Route: 065
     Dates: start: 2015
  10. ACETAMINOPHEN\TRAMADOL [Concomitant]
     Active Substance: ACETAMINOPHEN\TRAMADOL
     Indication: Pain
     Dosage: UNK
     Route: 065
     Dates: start: 2015
  11. VIMOVO [Concomitant]
     Active Substance: ESOMEPRAZOLE MAGNESIUM\NAPROXEN
     Indication: Product used for unknown indication
     Dosage: UNK
     Route: 065
     Dates: start: 2015

REACTIONS (22)
  - Ankylosing spondylitis [Unknown]
  - Fatigue [Unknown]
  - Pain in extremity [Recovered/Resolved]
  - Hypoaesthesia [Recovering/Resolving]
  - Peripheral swelling [Unknown]
  - Burning sensation [Unknown]
  - Pain in extremity [Unknown]
  - Pain [Not Recovered/Not Resolved]
  - Back pain [Unknown]
  - Discomfort [Unknown]
  - Neck pain [Unknown]
  - Musculoskeletal stiffness [Recovering/Resolving]
  - Joint swelling [Unknown]
  - Arthralgia [Unknown]
  - Spinal column injury [Unknown]
  - Erythema [Unknown]
  - Vein disorder [Recovered/Resolved]
  - Hot flush [Unknown]
  - Injection site swelling [Recovered/Resolved]
  - Accident at work [Unknown]
  - Movement disorder [Unknown]
  - Product dose omission issue [Unknown]

NARRATIVE: CASE EVENT DATE: 20190701
